FAERS Safety Report 4598351-3 (Version None)
Quarter: 2005Q1

REPORT INFORMATION
  Report Type: 
  Country: None (occurrence: None)
  Receive Date: 20050304
  Receipt Date: 20050221
  Transmission Date: 20050727
  Serious: Yes (Hospitalization)
  Sender: FDA-Public Use
  Company Number: 200510527EU

PATIENT
  Age: 84 Year
  Sex: Male

DRUGS (1)
  1. SEGURIL [Suspect]
     Indication: BRAIN OEDEMA
     Route: 042
     Dates: start: 20040524, end: 20040623

REACTIONS (1)
  - RENAL FAILURE ACUTE [None]
